FAERS Safety Report 7411209-7 (Version None)
Quarter: 2011Q2

REPORT INFORMATION
  Report Type: 
  Country: None (occurrence: None)
  Receive Date: 20110413
  Receipt Date: 20110405
  Transmission Date: 20111010
  Serious: Yes (Hospitalization, Other)
  Sender: FDA-Public Use
  Company Number: US-RB-001521-10

PATIENT
  Age: 48 Year
  Sex: Female

DRUGS (5)
  1. SUBOXONE [Suspect]
     Indication: DRUG DEPENDENCE
     Route: 060
     Dates: start: 20091001, end: 20091201
  2. SUBOXONE [Suspect]
     Dosage: VARIOUS DOSES TAKEN
     Route: 065
     Dates: start: 20100101
  3. KLONOPIN [Concomitant]
     Indication: ANXIETY
     Route: 065
     Dates: start: 20100101
  4. SUBOXONE [Suspect]
     Route: 060
     Dates: start: 20091201, end: 20100101
  5. SUBOXONE [Suspect]
     Route: 060
     Dates: start: 20100101, end: 20100101

REACTIONS (29)
  - DRUG DEPENDENCE [None]
  - DECREASED APPETITE [None]
  - HEADACHE [None]
  - CONVULSION [None]
  - VOMITING [None]
  - SLEEP TERROR [None]
  - FATIGUE [None]
  - FALL [None]
  - WEIGHT INCREASED [None]
  - ABNORMAL SLEEP-RELATED EVENT [None]
  - NAUSEA [None]
  - FEAR [None]
  - TOOTH DISORDER [None]
  - ANGINA PECTORIS [None]
  - MALAISE [None]
  - OBSTRUCTIVE AIRWAYS DISORDER [None]
  - PHOTOSENSITIVITY REACTION [None]
  - TOOTH EROSION [None]
  - TOOTH ABSCESS [None]
  - ANXIETY [None]
  - HERPES ZOSTER [None]
  - CHEST DISCOMFORT [None]
  - PAIN [None]
  - INSOMNIA [None]
  - RIB FRACTURE [None]
  - ANAESTHETIC COMPLICATION [None]
  - MIGRAINE [None]
  - WEIGHT DECREASED [None]
  - ARTERIAL OCCLUSIVE DISEASE [None]
